FAERS Safety Report 9756798 (Version 2)
Quarter: 2013Q4

REPORT INFORMATION
  Report Type: Spontaneous
  Country: DK (occurrence: DK)
  Receive Date: 20131213
  Receipt Date: 20131213
  Transmission Date: 20140711
  Serious: Yes (Disabling)
  Sender: FDA-Public Use
  Company Number: DK-GE HEALTHCARE MEDICAL DIAGNOSTICS-OSCN-NO-0604S-0096

PATIENT
  Age: 31 Year
  Sex: Male

DRUGS (1)
  1. OMNISCAN [Suspect]
     Indication: RENAL TRANSPLANT
     Dates: start: 20031002, end: 20031002

REACTIONS (1)
  - Nephrogenic systemic fibrosis [Not Recovered/Not Resolved]
